FAERS Safety Report 7378360-1 (Version None)
Quarter: 2011Q1

REPORT INFORMATION
  Report Type: 
  Country: None (occurrence: None)
  Receive Date: 20110328
  Receipt Date: 20110318
  Transmission Date: 20110831
  Serious: Yes (Hospitalization, Other)
  Sender: FDA-Public Use
  Company Number: US-ELI_LILLY_AND_COMPANY-US201102003442

PATIENT
  Sex: Female

DRUGS (7)
  1. HUMALOG [Suspect]
     Indication: TYPE 1 DIABETES MELLITUS
     Dosage: UNK, BID
     Route: 058
  2. HUMULIN N [Suspect]
     Dosage: 20 MG, 2/D
  3. HUMULIN N [Suspect]
     Dosage: 15 MG, EACH EVENING
  4. HUMALOG [Suspect]
     Dosage: UNK, BID
     Route: 058
  5. BACTRIM [Concomitant]
     Dosage: 2 DF, QD
  6. HUMULIN N [Suspect]
     Indication: DIABETES MELLITUS
     Dosage: 20 MG, EACH MORNING
  7. NOVOLOG [Concomitant]

REACTIONS (6)
  - IMPAIRED GASTRIC EMPTYING [None]
  - URINARY TRACT INFECTION [None]
  - DYSMENORRHOEA [None]
  - DIABETIC KETOACIDOSIS [None]
  - GLYCOSYLATED HAEMOGLOBIN INCREASED [None]
  - DRUG DOSE OMISSION [None]
